FAERS Safety Report 7622473-3 (Version None)
Quarter: 2011Q3

REPORT INFORMATION
  Report Type: 
  Country: None (occurrence: None)
  Receive Date: 20110718
  Receipt Date: 20110718
  Transmission Date: 20111222
  Serious: Yes (Other)
  Sender: FDA-Public Use
  Company Number: None

PATIENT
  Sex: Male
  Weight: 81.6475 kg

DRUGS (2)
  1. CARBAMAZEPRINE ER [Suspect]
     Indication: BIPOLAR DISORDER
     Dosage: 800MG @HS P.O.
     Route: 048
     Dates: start: 20110619
  2. CARBAMAZEPRINE ER [Suspect]
     Indication: EPILEPSY
     Dosage: 800MG @HS P.O.
     Route: 048
     Dates: start: 20110619

REACTIONS (6)
  - CRYING [None]
  - PRODUCT SUBSTITUTION ISSUE [None]
  - MOOD SWINGS [None]
  - STARING [None]
  - CONVULSION [None]
  - AGGRESSION [None]
